FAERS Safety Report 7849102 (Version 6)
Quarter: 2013Q2

REPORT INFORMATION
  Report Type: Spontaneous
  Country: US (occurrence: US)
  Receive Date: 20110310
  Receipt Date: 20130503
  Transmission Date: 20140414
  Serious: Yes (Death, Hospitalization, Other)
  Sender: FDA-Public Use
  Company Number: US-BAYER-2011-021249

PATIENT
  Age: 16 Year
  Sex: Female
  Weight: 100 kg

DRUGS (4)
  1. YASMIN [Suspect]
     Indication: MENSTRUATION IRREGULAR
     Dosage: UNK
     Dates: start: 200311, end: 20031121
  2. ADVIL [Concomitant]
     Indication: HEADACHE
  3. TYLENOL PM [Concomitant]
     Indication: HEADACHE
     Dosage: UNK
     Dates: start: 20031225
  4. PROPOFOL [Concomitant]
     Indication: SEDATION
     Dosage: UNK
     Route: 041
     Dates: start: 20031226

REACTIONS (11)
  - Superior sagittal sinus thrombosis [Fatal]
  - Cerebral haemorrhage [Fatal]
  - Cerebral circulatory failure [Fatal]
  - VIIth nerve paralysis [None]
  - Neurological decompensation [Fatal]
  - Brain oedema [Fatal]
  - Off label use [None]
  - Muscular weakness [Fatal]
  - Speech disorder [Fatal]
  - Headache [Fatal]
  - Toothache [Fatal]
